FAERS Safety Report 8036695-3 (Version None)
Quarter: 2012Q1

REPORT INFORMATION
  Report Type: 
  Country: None (occurrence: None)
  Receive Date: 20120111
  Receipt Date: 20120109
  Transmission Date: 20120608
  Serious: Yes (Hospitalization)
  Sender: FDA-Public Use
  Company Number: US-JNJFOC-20120102631

PATIENT
  Age: 81 Year
  Sex: Male

DRUGS (1)
  1. RAZADYNE [Suspect]
     Indication: PRODUCT USED FOR UNKNOWN INDICATION
     Route: 065

REACTIONS (4)
  - THROMBOCYTOPENIA [None]
  - ASTHENIA [None]
  - HYPERTENSION [None]
  - CONFUSIONAL STATE [None]
